FAERS Safety Report 10682236 (Version 1)
Quarter: 2014Q4

REPORT INFORMATION
  Report Type: Spontaneous
  Country: US (occurrence: US)
  Receive Date: 20141230
  Receipt Date: 20141230
  Transmission Date: 20150529
  Serious: Yes (Hospitalization)
  Sender: FDA-Public Use
  Company Number: US-JNJFOC-20141218290

PATIENT
  Age: 64 Year
  Sex: Male

DRUGS (2)
  1. IMBRUVICA [Suspect]
     Active Substance: IBRUTINIB
     Indication: CHRONIC LYMPHOCYTIC LEUKAEMIA
     Route: 048
     Dates: start: 20141204, end: 20141218
  2. METOPROLOL [Concomitant]
     Active Substance: METOPROLOL

REACTIONS (4)
  - Pleural effusion [Unknown]
  - Blood potassium increased [Unknown]
  - Hypotension [Unknown]
  - Pneumonia [Unknown]

NARRATIVE: CASE EVENT DATE: 201412
